FAERS Safety Report 6785881-9 (Version None)
Quarter: 2010Q2

REPORT INFORMATION
  Report Type: 
  Country: None (occurrence: None)
  Receive Date: 20100621
  Receipt Date: 20100621
  Transmission Date: 20101027
  Serious: Yes (Life-Threatening, Hospitalization)
  Sender: FDA-Public Use
  Company Number: None

PATIENT
  Age: 25 Year
  Sex: Female
  Weight: 71 kg

DRUGS (1)
  1. YASMIN [Suspect]
     Indication: CONTRACEPTION
     Dosage: 3 MG/ 30 MCG 1 EVERY DAY PO
     Route: 048
     Dates: start: 20090713, end: 20100613

REACTIONS (2)
  - PALPITATIONS [None]
  - PULMONARY THROMBOSIS [None]
